FAERS Safety Report 7315597-1 (Version None)
Quarter: 2011Q1

REPORT INFORMATION
  Report Type: 
  Country: None (occurrence: None)
  Receive Date: 20110225
  Receipt Date: 20110216
  Transmission Date: 20110831
  Serious: Yes (Hospitalization)
  Sender: FDA-Public Use
  Company Number: CA-BRISTOL-MYERS SQUIBB COMPANY-15522014

PATIENT
  Age: 58 Year
  Sex: Female

DRUGS (8)
  1. IRON [Concomitant]
     Dosage: PILLS
  2. PREDNISONE [Suspect]
  3. FOLIC ACID [Concomitant]
  4. NEXIUM [Concomitant]
  5. HORMONES [Concomitant]
     Dosage: PILLS
  6. SOLU-MEDROL [Suspect]
  7. ORENCIA [Suspect]
     Indication: RHEUMATOID ARTHRITIS
     Dosage: LAST INFUSION WAS IN JUN2009
     Route: 042
     Dates: start: 20080131, end: 20090601
  8. ADALAT [Concomitant]

REACTIONS (2)
  - ADRENOCORTICAL INSUFFICIENCY ACUTE [None]
  - SEPTIC SHOCK [None]
